FAERS Safety Report 7562194-9 (Version None)
Quarter: 2011Q2

REPORT INFORMATION
  Report Type: 
  Country: None (occurrence: None)
  Receive Date: 20110614
  Receipt Date: 20110531
  Transmission Date: 20111010
  Serious: Yes (Hospitalization)
  Sender: FDA-Public Use
  Company Number: 1000021494

PATIENT
  Age: 65 Year
  Sex: Male
  Weight: 77 kg

DRUGS (1)
  1. CITALOPRAM HYDROBROMIDE [Suspect]
     Indication: PRODUCT USED FOR UNKNOWN INDICATION
     Dosage: ORAL
     Route: 048
     Dates: start: 20090501, end: 20090515

REACTIONS (5)
  - PANIC ATTACK [None]
  - OEDEMA [None]
  - FEAR [None]
  - ANXIETY [None]
  - CHEST DISCOMFORT [None]
